FAERS Safety Report 21106471 (Version 1)
Quarter: 2022Q3

REPORT INFORMATION
  Report Type: Spontaneous
  Country: CN (occurrence: CN)
  Receive Date: 20220720
  Receipt Date: 20220720
  Transmission Date: 20221027
  Serious: Yes (Other)
  Sender: FDA-Public Use
  Company Number: CN-ELI_LILLY_AND_COMPANY-CN202207004087

PATIENT
  Sex: Male
  Weight: 70 kg

DRUGS (3)
  1. HUMULIN 70/30 [Suspect]
     Active Substance: INSULIN HUMAN
     Indication: Type 2 diabetes mellitus
     Dosage: 30 U, EACH MORNING
     Route: 058
     Dates: start: 2008
  2. HUMULIN 70/30 [Suspect]
     Active Substance: INSULIN HUMAN
     Dosage: 20 U, DAILY (AFTERNOON)
     Route: 058
     Dates: start: 2008
  3. GLUCOBAY [Concomitant]
     Active Substance: ACARBOSE
     Indication: Diabetes mellitus
     Dosage: 1 DOSAGE FORM, TID
     Route: 048
     Dates: start: 2018

REACTIONS (4)
  - Blindness [Unknown]
  - Keratitis [Unknown]
  - Blood glucose increased [Unknown]
  - Immune system disorder [Unknown]
